FAERS Safety Report 6282330-4 (Version None)
Quarter: 2009Q3

REPORT INFORMATION
  Report Type: 
  Country: None (occurrence: None)
  Receive Date: 20090724
  Receipt Date: 20090717
  Transmission Date: 20100115
  Serious: Yes (Death)
  Sender: FDA-Public Use
  Company Number: US-JNJFOC-20090706500

PATIENT
  Age: 52 Year
  Sex: Female
  Weight: 61.24 kg

DRUGS (5)
  1. TYLENOL (CAPLET) [Suspect]
     Route: 048
  2. TYLENOL (CAPLET) [Suspect]
     Indication: BACK PAIN
     Route: 048
  3. VICODIN [Suspect]
     Indication: BACK PAIN
     Dosage: ^6-8 DOSES DAILY FOR OVER A YEAR^
     Route: 048
  4. ACETAMINOPHEN [Suspect]
  5. ACETAMINOPHEN [Suspect]
     Indication: BACK PAIN
     Dosage: UNKNOWN (TAKEN A FEW DAYS BEFORE DEATH)

REACTIONS (2)
  - DRUG ADMINISTRATION ERROR [None]
  - INTENTIONAL OVERDOSE [None]
